FAERS Safety Report 9005528 (Version 2)
Quarter: 2013Q1

REPORT INFORMATION
  Report Type: Report from Study
  Country: US (occurrence: US)
  Receive Date: 20130109
  Receipt Date: 20130122
  Transmission Date: 20140127
  Serious: Yes (Other)
  Sender: FDA-Public Use
  Company Number: US-JNJFOC-20130103636

PATIENT
  Age: 78 Year
  Sex: Male
  Weight: 96.16 kg

DRUGS (9)
  1. XARELTO [Suspect]
     Indication: CEREBROVASCULAR ACCIDENT PROPHYLAXIS
     Route: 048
     Dates: start: 20130104
  2. XARELTO [Suspect]
     Indication: ATRIAL FIBRILLATION
     Route: 048
     Dates: start: 20130104
  3. MELOXICAM [Concomitant]
     Indication: ARTHRITIS
     Route: 048
     Dates: start: 201212
  4. CARVEDILOL [Concomitant]
     Indication: HEART RATE
     Route: 048
     Dates: start: 2011
  5. OMEPRAZOLE [Concomitant]
     Indication: GASTROOESOPHAGEAL REFLUX DISEASE
     Route: 048
     Dates: start: 2010
  6. FUROSEMIDE [Concomitant]
     Indication: FLUID RETENTION
     Route: 048
  7. AMLODIPINE [Concomitant]
     Indication: CARDIAC DISORDER
     Route: 048
  8. ATORVASTATIN [Concomitant]
     Indication: HYPERCHOLESTEROLAEMIA
     Route: 048
  9. LISINOPRIL [Concomitant]
     Route: 048

REACTIONS (2)
  - Haematochezia [Recovered/Resolved]
  - Diarrhoea [Not Recovered/Not Resolved]
